FAERS Safety Report 9252237 (Version 1)
Quarter: 2013Q1

REPORT INFORMATION
  Report Type: Spontaneous
  Country: US (occurrence: None)
  Receive Date: 20130305
  Receipt Date: 20130305
  Transmission Date: 20140127
  Serious: Yes (Other)
  Sender: FDA-Public Use
  Company Number: 163-21880-12091106

PATIENT
  Age: 66 Year
  Sex: Female

DRUGS (3)
  1. REVLIMID [Suspect]
     Indication: PLASMA CELL MYELOMA
     Dosage: 15 MG, QHS,  PO
     Route: 048
     Dates: start: 20120902
  2. VELCADE (BORTEZOMIB) [Suspect]
     Indication: PRODUCT USED FOR UNKNOWN INDICATION
  3. STEROID (OTHER ANTIINFLAMMATORY / ANTIRHEUMATIC AGENTS I) [Suspect]

REACTIONS (2)
  - Neuropathy peripheral [None]
  - Muscular weakness [None]
